FAERS Safety Report 24560372 (Version 1)
Quarter: 2024Q4

REPORT INFORMATION
  Report Type: Spontaneous
  Country: US (occurrence: None)
  Receive Date: 20241028
  Receipt Date: 20241028
  Transmission Date: 20250115
  Serious: Yes (Other)
  Sender: Public
  Company Number: None

PATIENT
  Age: 59 Year
  Sex: Female
  Weight: 50.85 kg

DRUGS (12)
  1. ARIKAYCE [Suspect]
     Active Substance: AMIKACIN
     Indication: Mycobacterium avium complex infection
     Dosage: FREQUENCY : DAILY;?
     Route: 055
     Dates: start: 20241002, end: 20241023
  2. AZITHROMYCIN [Concomitant]
     Active Substance: AZITHROMYCIN
  3. RIFAMPIN [Concomitant]
     Active Substance: RIFAMPIN
  4. ETHAMBUTOL [Concomitant]
     Active Substance: ETHAMBUTOL HYDROCHLORIDE
  5. DOTTI ESTROGEN PATCH [Concomitant]
  6. PROGESTERONE [Concomitant]
     Active Substance: PROGESTERONE
  7. TESTOSTERONE [Concomitant]
     Active Substance: TESTOSTERONE
  8. D3+K2 [Concomitant]
  9. MAGNESIUM [Concomitant]
     Active Substance: MAGNESIUM
  10. ELDERBERRY WITH ZINC [Concomitant]
  11. VITAMIN C [Concomitant]
     Active Substance: ASCORBIC ACID
  12. VITAMIN D [Concomitant]
     Active Substance: VITAMIN D NOS

REACTIONS (6)
  - Rhinalgia [None]
  - Sinus pain [None]
  - Headache [None]
  - Epistaxis [None]
  - Chest pain [None]
  - Dyspnoea [None]

NARRATIVE: CASE EVENT DATE: 20241012
